FAERS Safety Report 9838893 (Version 1)
Quarter: 2014Q1

REPORT INFORMATION
  Report Type: Spontaneous
  Country: GB (occurrence: GB)
  Receive Date: 20140123
  Receipt Date: 20140123
  Transmission Date: 20141002
  Serious: Yes (Other)
  Sender: FDA-Public Use
  Company Number: GB-TEVA-455448ISR

PATIENT
  Sex: Female

DRUGS (1)
  1. LEVOTHYROXINE [Suspect]
     Route: 048

REACTIONS (8)
  - Swelling [Unknown]
  - Ocular hyperaemia [Unknown]
  - Weight increased [Unknown]
  - Abdominal distension [Unknown]
  - Fluid retention [Unknown]
  - Alopecia [Unknown]
  - Headache [Unknown]
  - Hyperhidrosis [Unknown]
